FAERS Safety Report 21269947 (Version 2)
Quarter: 2022Q3

REPORT INFORMATION
  Report Type: Spontaneous
  Country: UA (occurrence: UA)
  Receive Date: 20220830
  Receipt Date: 20220914
  Transmission Date: 20221027
  Serious: Yes (Other)
  Sender: FDA-Public Use
  Company Number: UA-NOVARTISPH-NVSC2022UA192015

PATIENT
  Age: 60 Year
  Sex: Male
  Weight: 98 kg

DRUGS (2)
  1. SECUKINUMAB [Suspect]
     Active Substance: SECUKINUMAB
     Indication: Psoriasis
     Dosage: 300 MG, QMO
     Route: 058
     Dates: start: 202206
  2. SECUKINUMAB [Suspect]
     Active Substance: SECUKINUMAB
     Dosage: 300 MG, QMO
     Route: 058
     Dates: start: 20220809

REACTIONS (1)
  - Blister [Not Recovered/Not Resolved]

NARRATIVE: CASE EVENT DATE: 20220820
